FAERS Safety Report 18156126 (Version 1)
Quarter: 2020Q3

REPORT INFORMATION
  Report Type: Spontaneous
  Country: US (occurrence: US)
  Receive Date: 20200814
  Receipt Date: 20200814
  Transmission Date: 20201103
  Serious: Yes (Other)
  Sender: FDA-Public Use
  Company Number: None

PATIENT
  Age: 81 Year
  Sex: Male
  Weight: 90 kg

DRUGS (5)
  1. EZETAMIBE [Concomitant]
  2. AMLODIPINE [Concomitant]
     Active Substance: AMLODIPINE BESYLATE
  3. XARELTO [Suspect]
     Active Substance: RIVAROXABAN
     Indication: ATRIAL FIBRILLATION
     Route: 048
     Dates: start: 20200808
  4. PROBIOTICS [Concomitant]
     Active Substance: PROBIOTICS NOS
  5. ELIQUIS [Suspect]
     Active Substance: APIXABAN

REACTIONS (1)
  - Fatigue [None]

NARRATIVE: CASE EVENT DATE: 20200808
